FAERS Safety Report 7478352-8 (Version None)
Quarter: 2011Q2

REPORT INFORMATION
  Report Type: 
  Country: None (occurrence: None)
  Receive Date: 20110513
  Receipt Date: 20110427
  Transmission Date: 20111010
  Serious: Yes (Disabling, Other)
  Sender: FDA-Public Use
  Company Number: DK-BAYER-201037560GPV

PATIENT
  Age: 61 Year
  Sex: Male
  Weight: 87 kg

DRUGS (12)
  1. PHOS-EX [Concomitant]
  2. ETALPHA [Concomitant]
  3. FURIX [Concomitant]
  4. METOPROLOL SUCCINATE [Concomitant]
  5. PREDNISOLONE [Suspect]
     Indication: NEPHROGENIC SYSTEMIC FIBROSIS
     Dates: start: 20020101, end: 20070501
  6. MAGNEVIST [Suspect]
     Dates: start: 20020902, end: 20020902
  7. NEORECORMON [Concomitant]
  8. DOTAREM [Suspect]
     Indication: PRODUCT USED FOR UNKNOWN INDICATION
     Route: 042
     Dates: start: 20061003
  9. NORVASC [Concomitant]
  10. APURIN [Concomitant]
  11. MAGNEVIST [Suspect]
     Indication: SCAN WITH CONTRAST
     Dates: start: 20020606, end: 20020606
  12. EPOGEN [Concomitant]

REACTIONS (19)
  - NEPHROGENIC SYSTEMIC FIBROSIS [None]
  - OEDEMA PERIPHERAL [None]
  - ASTHENIA [None]
  - FATIGUE [None]
  - PRURITUS [None]
  - CALCINOSIS [None]
  - SKIN DISCOLOURATION [None]
  - GASTRIC ULCER HAEMORRHAGE [None]
  - PAIN OF SKIN [None]
  - APPETITE DISORDER [None]
  - SKIN DISORDER [None]
  - GAIT DISTURBANCE [None]
  - JOINT RANGE OF MOTION DECREASED [None]
  - MOTOR DYSFUNCTION [None]
  - HYPOAESTHESIA [None]
  - RESTLESS LEGS SYNDROME [None]
  - MUSCULOSKELETAL STIFFNESS [None]
  - OSTEONECROSIS [None]
  - ARTHRALGIA [None]
